FAERS Safety Report 3691663 (Version 3)
Quarter: 2012Q4

REPORT INFORMATION
  Report Type: 
  Country: CA (occurrence: CA)
  Receive Date: 20010802
  Receipt Date: 20121114
  Transmission Date: 20130627
  Serious: Yes (Hospitalization, Other)
  Sender: FDA-Public Use
  Company Number: PHBS2001CA07492

PATIENT
  Age: 72 Year
  Sex: Female

DRUGS (3)
  1. EXELON [Suspect]
     Indication: DEMENTIA ALZHEIMER^S TYPE
     Dosage: 4.5 mg, BID
     Route: 048
     Dates: start: 20010618
  2. EXELON [Suspect]
     Dosage: 1.5 mg, BID
     Route: 048
     Dates: start: 20010705
  3. EXELON [Suspect]
     Dosage: 3 mg, BID
     Route: 048
     Dates: start: 200109

REACTIONS (11)
  - Infarction [Not Recovered/Not Resolved]
  - Asthenia [Not Recovered/Not Resolved]
  - Arrhythmia [Recovering/Resolving]
  - Pallor [Not Recovered/Not Resolved]
  - Petit mal epilepsy [Recovered/Resolved]
  - Fall [Recovered/Resolved]
  - Pupillary reflex impaired [Recovered/Resolved]
  - Unresponsive to stimuli [Recovering/Resolving]
  - Myocardial infarction [Unknown]
  - Nausea [Unknown]
  - Dizziness [Unknown]
